FAERS Safety Report 25626797 (Version 1)
Quarter: 2025Q3

REPORT INFORMATION
  Report Type: Spontaneous
  Country: US (occurrence: US)
  Receive Date: 20250731
  Receipt Date: 20250731
  Transmission Date: 20251020
  Serious: Yes (Death, Other)
  Sender: AMGEN
  Company Number: US-AMGEN-USASP2025146829

PATIENT
  Age: 4 Decade
  Sex: Male

DRUGS (14)
  1. RITUXIMAB [Suspect]
     Active Substance: RITUXIMAB
     Indication: Heart transplant rejection
     Route: 065
  2. PREDNISONE [Suspect]
     Active Substance: PREDNISONE
     Indication: Heart transplant rejection
     Route: 065
  3. OSELTAMIVIR [Concomitant]
     Active Substance: OSELTAMIVIR
  4. BASILIXIMAB [Concomitant]
     Active Substance: BASILIXIMAB
  5. VALGANCICLOVIR [Concomitant]
     Active Substance: VALGANCICLOVIR
     Indication: Prophylaxis
  6. VALGANCICLOVIR [Concomitant]
     Active Substance: VALGANCICLOVIR
     Indication: Cytomegalovirus viraemia
  7. SULFAMETHOXAZOLE\TRIMETHOPRIM [Concomitant]
     Active Substance: SULFAMETHOXAZOLE\TRIMETHOPRIM
     Indication: Prophylaxis
  8. SIROLIMUS [Concomitant]
     Active Substance: SIROLIMUS
  9. TACROLIMUS [Concomitant]
     Active Substance: TACROLIMUS
     Indication: Immunosuppressant drug therapy
  10. METHYLPREDNISOLONE [Concomitant]
     Active Substance: METHYLPREDNISOLONE
  11. THYMOCYTE IMMUNE GLOBULIN NOS [Concomitant]
     Active Substance: THYMOCYTE IMMUNE GLOBULIN NOS
     Indication: Heart transplant rejection
  12. Immunoglobulin [Concomitant]
     Indication: Heart transplant rejection
  13. BORTEZOMIB [Concomitant]
     Active Substance: BORTEZOMIB
     Indication: Heart transplant rejection
  14. MILRINONE [Concomitant]
     Active Substance: MILRINONE
     Indication: Heart transplant rejection

REACTIONS (4)
  - Transplant rejection [Fatal]
  - Haematemesis [Unknown]
  - Cardiogenic shock [Unknown]
  - Renal failure [Unknown]
